FAERS Safety Report 7753783 (Version 2)
Quarter: 2013Q1

REPORT INFORMATION
  Report Type: Spontaneous
  Country: US (occurrence: US)
  Receive Date: 20110110
  Receipt Date: 20130325
  Transmission Date: 20140127
  Serious: Yes (Death)
  Sender: FDA-Public Use
  Company Number: US-PFIZER INC-2011003024

PATIENT
  Age: 62 Year
  Sex: Male

DRUGS (10)
  1. VENLAFAXINE HYDROCHLORIDE [Suspect]
     Dosage: UNK
     Route: 048
  2. FLUOXETINE HYDROCHLORIDE [Suspect]
     Dosage: UNK
     Route: 048
  3. SIMVASTATIN [Suspect]
     Dosage: UNK
     Route: 048
  4. DIAZEPAM [Suspect]
     Dosage: UNK
     Route: 048
  5. METHADONE [Suspect]
     Dosage: UNK
     Route: 048
  6. QUETIAPINE [Suspect]
     Dosage: UNK
     Route: 048
  7. ZOLPIDEM [Suspect]
     Dosage: UNK
     Route: 048
  8. BUSPIRONE [Suspect]
     Dosage: UNK
     Route: 048
  9. TRAMADOL [Suspect]
     Dosage: UNK
     Route: 048
  10. ALBUTEROL [Suspect]
     Dosage: UNK
     Route: 048

REACTIONS (3)
  - Death [Fatal]
  - Cardiac arrest [Fatal]
  - Respiratory arrest [Fatal]
